FAERS Safety Report 7713973-6 (Version None)
Quarter: 2011Q3

REPORT INFORMATION
  Report Type: 
  Country: None (occurrence: None)
  Receive Date: 20110826
  Receipt Date: 20110822
  Transmission Date: 20111222
  Serious: Yes (Other)
  Sender: FDA-Public Use
  Company Number: IN-MERCK-1108USA03161

PATIENT
  Age: 54 Year
  Sex: Male

DRUGS (2)
  1. COZAAR [Suspect]
     Indication: HYPERTENSION
     Route: 048
  2. METOPROLOL [Concomitant]
     Indication: HYPERTENSION
     Route: 065

REACTIONS (2)
  - HYPERTENSION [None]
  - DRUG INEFFECTIVE [None]
